FAERS Safety Report 18841133 (Version 1)
Quarter: 2021Q1

REPORT INFORMATION
  Report Type: Spontaneous
  Country: US (occurrence: US)
  Receive Date: 20210203
  Receipt Date: 20210203
  Transmission Date: 20210419
  Serious: Yes (Hospitalization, Other)
  Sender: FDA-Public Use
  Company Number: US-INDIVIOR US-INDV-128196-2021

PATIENT

DRUGS (4)
  1. LORAZEPAM. [Concomitant]
     Active Substance: LORAZEPAM
     Indication: PRODUCT USED FOR UNKNOWN INDICATION
     Dosage: 2 MILLIGRAM (34MIN PRIOR TO INTUBATION)
     Route: 042
  2. LORAZEPAM. [Concomitant]
     Active Substance: LORAZEPAM
     Dosage: 1 MILLIGRAM (45MIN PRIOR TO INTUBATION)
     Route: 042
  3. BUPRENORPHINE. [Suspect]
     Active Substance: BUPRENORPHINE
     Indication: DRUG USE DISORDER
     Dosage: 0.3 MILLIGRAM (29MIN PRIOR INTUBATION)
     Route: 042
  4. LORAZEPAM. [Concomitant]
     Active Substance: LORAZEPAM
     Dosage: 2 MILLIGRAM (MORE THAN THREE HOURS AFTER INTUBATION)
     Route: 042

REACTIONS (4)
  - Pneumonia [Unknown]
  - Septic shock [Unknown]
  - Respiratory failure [Unknown]
  - Product use issue [Unknown]
